FAERS Safety Report 8885908 (Version 2)
Quarter: 2013Q1

REPORT INFORMATION
  Report Type: Spontaneous
  Country: US (occurrence: CA)
  Receive Date: 20121101
  Receipt Date: 20130207
  Transmission Date: 20140127
  Serious: Yes (Other)
  Sender: FDA-Public Use
  Company Number: CA-GILEAD-2012-0063517

PATIENT
  Sex: Female

DRUGS (4)
  1. CAYSTON [Suspect]
     Indication: CYSTIC FIBROSIS
     Dosage: 75 MG, UNK
     Route: 050
     Dates: start: 20111213, end: 20121023
  2. ATARAX                             /00058401/ [Concomitant]
     Indication: PRURITUS
     Dosage: UNK
     Route: 048
  3. REACTINE                           /00884302/ [Concomitant]
     Indication: PRURITUS
     Dosage: UNK
     Route: 048
  4. CORTISONE [Concomitant]
     Indication: INFLAMMATION
     Dosage: UNK
     Route: 048

REACTIONS (2)
  - Vasculitis [Recovering/Resolving]
  - Pruritus [Recovering/Resolving]
